FAERS Safety Report 18238352 (Version 2)
Quarter: 2020Q3

REPORT INFORMATION
  Report Type: Report from Study
  Country: US (occurrence: US)
  Receive Date: 20200907
  Receipt Date: 20200921
  Transmission Date: 20201103
  Serious: No
  Sender: FDA-Public Use
  Company Number: NVSC2020US244987

PATIENT
  Age: 36 Year
  Sex: Male

DRUGS (2)
  1. COSENTYX [Suspect]
     Active Substance: SECUKINUMAB
     Indication: PSORIATIC ARTHROPATHY
     Dosage: 300 MG, QW
     Route: 058
     Dates: start: 20200812
  2. COSENTYX [Suspect]
     Active Substance: SECUKINUMAB
     Indication: PSORIASIS
     Route: 065
     Dates: start: 20200810

REACTIONS (5)
  - Tenderness [Unknown]
  - Arthralgia [Unknown]
  - Mood swings [Unknown]
  - Anger [Unknown]
  - Irritability [Unknown]

NARRATIVE: CASE EVENT DATE: 20200831
